FAERS Safety Report 6266673-6 (Version None)
Quarter: 2009Q3

REPORT INFORMATION
  Report Type: 
  Country: None (occurrence: None)
  Receive Date: 20090710
  Receipt Date: 20090624
  Transmission Date: 20100115
  Serious: Yes (Hospitalization)
  Sender: FDA-Public Use
  Company Number: B0434217A

PATIENT
  Age: 71 Year
  Sex: Female

DRUGS (10)
  1. PAXIL [Suspect]
     Dosage: 20 MG / THREE TIMES PER DAY / ORAL
     Route: 048
     Dates: start: 20060718, end: 20060807
  2. DILTIAZEM HYDROCHLORIDE [Concomitant]
  3. TRIMETAZIDINE HCL [Concomitant]
  4. LYSINE ASPIRIN [Concomitant]
  5. LATANOPROST [Concomitant]
  6. HYPROMELLOSE [Concomitant]
  7. ROSUVASTATIN CALCIUM [Concomitant]
  8. ALPRAZOLAM [Concomitant]
  9. OXAZEPAM [Concomitant]
  10. TIANEPTINE SODIUM [Concomitant]

REACTIONS (5)
  - CHOLESTASIS [None]
  - KLEBSIELLA INFECTION [None]
  - MORGANELLA INFECTION [None]
  - SKIN HYPERPIGMENTATION [None]
  - TOXIC EPIDERMAL NECROLYSIS [None]
